FAERS Safety Report 24183143 (Version 1)
Quarter: 2024Q3

REPORT INFORMATION
  Report Type: Other
  Country: US (occurrence: US)
  Receive Date: 20240807
  Receipt Date: 20240807
  Transmission Date: 20241017
  Serious: Yes (Death, Life-Threatening, Hospitalization, Disabling)
  Sender: NOSTRUM
  Company Number: US-Nostrum Laboratories, Inc.-2160080

PATIENT
  Age: 78 Year
  Sex: Female

DRUGS (1)
  1. RANITIDINE [Suspect]
     Active Substance: RANITIDINE
     Indication: Gastrooesophageal reflux disease
     Route: 048

REACTIONS (1)
  - Lung neoplasm malignant [Fatal]
